FAERS Safety Report 5375671-6 (Version None)
Quarter: 2007Q2

REPORT INFORMATION
  Report Type: 
  Country: None (occurrence: None)
  Receive Date: 20070629
  Receipt Date: 20070622
  Transmission Date: 20071010
  Serious: Yes (Other)
  Sender: FDA-Public Use
  Company Number: GB-PFIZER INC-2007052039

PATIENT
  Age: 67 Year
  Sex: Female
  Weight: 84 kg

DRUGS (5)
  1. SERTRALINE [Suspect]
     Indication: DEPRESSION
     Dates: start: 20070522, end: 20070526
  2. SERTRALINE [Suspect]
     Indication: ANXIETY
  3. GINGER [Concomitant]
     Route: 048
  4. GINSENG [Concomitant]
     Route: 048
  5. KALMS [Concomitant]
     Route: 048

REACTIONS (5)
  - CRYING [None]
  - DIARRHOEA [None]
  - NAUSEA [None]
  - SLEEP DISORDER [None]
  - TREMOR [None]
